FAERS Safety Report 9319521 (Version 1)
Quarter: 2013Q2

REPORT INFORMATION
  Report Type: Spontaneous
  Country: US (occurrence: US)
  Receive Date: 20130530
  Receipt Date: 20130530
  Transmission Date: 20140414
  Serious: No
  Sender: FDA-Public Use
  Company Number: US-GLAXOSMITHKLINE-A0994817A

PATIENT
  Age: 64 Year
  Sex: Male

DRUGS (1)
  1. FLOLAN [Suspect]
     Indication: PRODUCT USED FOR UNKNOWN INDICATION
     Dosage: 25NGKM CONTINUOUS
     Route: 065
     Dates: start: 20110427

REACTIONS (3)
  - Miliaria [Unknown]
  - Diarrhoea [Unknown]
  - Medical device complication [Unknown]
